FAERS Safety Report 20421137 (Version 1)
Quarter: 2022Q1

REPORT INFORMATION
  Report Type: Spontaneous
  Country: US (occurrence: US)
  Receive Date: 20220203
  Receipt Date: 20220203
  Transmission Date: 20220424
  Serious: No
  Sender: FDA-Public Use
  Company Number: US-GW PHARMA-202201USGW00407

PATIENT
  Sex: Male
  Weight: 38.095 kg

DRUGS (3)
  1. EPIDIOLEX [Suspect]
     Active Substance: CANNABIDIOL
     Indication: Epilepsy
     Dosage: 13.13 MG/KG/DAY, 500 MILLIGRAM, QD (100 MG IN MORNING, 100 MG IN AFTERNOON AND 300 MG AT NIGHT)
     Route: 048
     Dates: start: 202112
  2. EPIDIOLEX [Suspect]
     Active Substance: CANNABIDIOL
     Indication: Epilepsy
     Dosage: 13.78 MG/KG/DAY, 525 MILLIGRAM, QD (100 MG IN MORNING, 100 MG IN AFTERNOON AND 325 MG AT NIGHT)
     Route: 048
  3. EPIDIOLEX [Suspect]
     Active Substance: CANNABIDIOL
     Indication: Status epilepticus

REACTIONS (2)
  - Weight increased [Unknown]
  - Off label use [Unknown]
